FAERS Safety Report 5888112-7 (Version None)
Quarter: 2008Q3

REPORT INFORMATION
  Report Type: 
  Country: None (occurrence: None)
  Receive Date: 20080918
  Receipt Date: 20080910
  Transmission Date: 20090109
  Serious: Yes (Other)
  Sender: FDA-Public Use
  Company Number: US-PURDUE-USA_2008_0034845

PATIENT
  Age: 54 Year
  Sex: Female
  Weight: 99 kg

DRUGS (14)
  1. OXYCONTIN [Suspect]
     Indication: PAIN
     Dosage: 40 MG, BID
     Route: 048
     Dates: start: 20010601, end: 20010628
  2. OXYCONTIN [Suspect]
     Dosage: 40 MG, HS
     Dates: start: 20010629
  3. ACTIQ [Suspect]
     Indication: MUSCULOSKELETAL CHEST PAIN
     Dates: start: 20010601, end: 20020801
  4. ACTIQ [Suspect]
     Dosage: 200 MCG, BID
     Route: 002
     Dates: start: 20030310, end: 20030728
  5. ACTIQ [Suspect]
     Dosage: UNK, UNK
     Dates: start: 20030729, end: 20031101
  6. LORTAB [Suspect]
     Indication: PAIN
     Dosage: UNK MG, UNK
     Route: 048
     Dates: start: 19991013, end: 20010503
  7. LORTAB [Suspect]
     Dosage: UNK MG, UNK
     Route: 048
     Dates: start: 20010901, end: 20020701
  8. LORTAB [Suspect]
     Dosage: UNK MG, UNK
     Route: 048
     Dates: start: 20030101
  9. METHADONE HCL [Suspect]
     Indication: DRUG USE FOR UNKNOWN INDICATION
     Dosage: 5 MG, TID
     Route: 048
     Dates: start: 20030325
  10. PERCOCET [Concomitant]
     Indication: DRUG USE FOR UNKNOWN INDICATION
     Dosage: UNK MG, UNK
     Route: 048
     Dates: start: 20010504, end: 20010701
  11. DURAGESIC-100 [Concomitant]
     Indication: DRUG USE FOR UNKNOWN INDICATION
     Dosage: UNK MG, UNK
     Route: 048
     Dates: start: 20020131, end: 20021001
  12. GABITRIL [Concomitant]
     Indication: DRUG USE FOR UNKNOWN INDICATION
     Dosage: UNK MG, UNK
     Route: 048
     Dates: start: 20010705, end: 20030101
  13. VIOXX [Concomitant]
     Indication: DRUG USE FOR UNKNOWN INDICATION
     Dosage: UNK MG, UNK
     Route: 048
     Dates: start: 20000727
  14. ZANAFLEX [Concomitant]
     Indication: DRUG USE FOR UNKNOWN INDICATION
     Dosage: UNK MG, UNK
     Route: 048
     Dates: start: 20011228, end: 20030101

REACTIONS (5)
  - DENTAL CARIES [None]
  - INTESTINAL FUNCTIONAL DISORDER [None]
  - TOOTH ABSCESS [None]
  - TOOTH FRACTURE [None]
  - TOOTHACHE [None]
